FAERS Safety Report 18953972 (Version 1)
Quarter: 2021Q1

REPORT INFORMATION
  Report Type: Spontaneous
  Country: US (occurrence: US)
  Receive Date: 20210301
  Receipt Date: 20210301
  Transmission Date: 20210420
  Serious: Yes (Other)
  Sender: FDA-Public Use
  Company Number: US-GLAXOSMITHKLINE-US2021GSK040703

PATIENT
  Sex: Male

DRUGS (12)
  1. ZANTAC [Suspect]
     Active Substance: RANITIDINE HYDROCHLORIDE
     Indication: GASTROOESOPHAGEAL REFLUX DISEASE
  2. RANITIDINE. [Suspect]
     Active Substance: RANITIDINE
     Indication: DYSPEPSIA
     Dosage: 150 MG,SOMETIMES DAILY ?OTHERS 3?4X PER WEEK
     Route: 065
     Dates: start: 198901, end: 202002
  3. ZANTAC [Suspect]
     Active Substance: RANITIDINE HYDROCHLORIDE
     Indication: DYSPEPSIA
     Dosage: 75 MG ,SOMETIMES DAILY ?OTHERS 3?4X PER WEEK
     Route: 065
     Dates: start: 198901, end: 202002
  4. RANITIDINE. [Suspect]
     Active Substance: RANITIDINE
     Indication: DYSPEPSIA
     Dosage: 75 MG,SOMETIMES DAILY ?OTHERS 3?4X PER WEEK
     Route: 065
     Dates: start: 198901, end: 202002
  5. RANITIDINE. [Suspect]
     Active Substance: RANITIDINE
     Indication: GASTROOESOPHAGEAL REFLUX DISEASE
  6. RANITIDINE CAPSULE [Suspect]
     Active Substance: RANITIDINE
     Indication: DYSPEPSIA
     Dosage: 75 MG,SOMETIMES DAILY ?OTHERS 3?4X PER WEEK
     Route: 065
     Dates: start: 198901, end: 202002
  7. RANITIDINE CAPSULE [Suspect]
     Active Substance: RANITIDINE
     Indication: DYSPEPSIA
     Dosage: 150 MG, SOMETIMES DAILY ?OTHERS 3?4X PER WEEK
     Route: 065
     Dates: start: 198901, end: 202002
  8. ZANTAC [Suspect]
     Active Substance: RANITIDINE HYDROCHLORIDE
     Indication: DYSPEPSIA
     Dosage: 150 MG, SOMETIMES DAILY ?OTHERS 3?4X PER WEEK
     Route: 065
     Dates: start: 198901, end: 202002
  9. RANITIDINE CAPSULE [Suspect]
     Active Substance: RANITIDINE
     Indication: GASTROOESOPHAGEAL REFLUX DISEASE
  10. ZANTAC [Suspect]
     Active Substance: RANITIDINE HYDROCHLORIDE
     Indication: GASTROOESOPHAGEAL REFLUX DISEASE
  11. ZANTAC [Suspect]
     Active Substance: RANITIDINE HYDROCHLORIDE
     Indication: DYSPEPSIA
     Dosage: 75 MG, SOMETIMES DAILY ?OTHERS 3?4X PER WEEK
     Route: 065
     Dates: start: 198901, end: 202002
  12. ZANTAC [Suspect]
     Active Substance: RANITIDINE HYDROCHLORIDE
     Indication: DYSPEPSIA
     Dosage: 150 MG, SOMETIMES DAILY ?OTHERS 3?4X PER WEEK
     Route: 065
     Dates: start: 198901, end: 202002

REACTIONS (2)
  - Bladder cancer [Unknown]
  - Renal cancer [Unknown]
